FAERS Safety Report 12458931 (Version 2)
Quarter: 2016Q2

REPORT INFORMATION
  Report Type: Report from Study
  Country: BR (occurrence: BR)
  Receive Date: 20160613
  Receipt Date: 20160616
  Transmission Date: 20160815
  Serious: Yes (Death, Hospitalization, Other)
  Sender: FDA-Public Use
  Company Number: PHHY2016BR080957

PATIENT
  Age: 91 Year
  Sex: Female
  Weight: 55 kg

DRUGS (5)
  1. EXELON [Suspect]
     Active Substance: RIVASTIGMINE TARTRATE
     Dosage: UNK
     Route: 065
     Dates: end: 20160514
  2. EXELON [Suspect]
     Active Substance: RIVASTIGMINE TARTRATE
     Indication: DEMENTIA ALZHEIMER^S TYPE
     Dosage: 1.5 MG, 2 CAPSULES A DAY (BID)
     Route: 048
     Dates: start: 2005
  3. EXELON [Suspect]
     Active Substance: RIVASTIGMINE TARTRATE
     Dosage: 3 MG, UNK
     Route: 048
  4. EXELON [Suspect]
     Active Substance: RIVASTIGMINE TARTRATE
     Dosage: 4.5 MG, 2 CAPSULES A DAY (BID)
     Route: 048
     Dates: start: 201509, end: 20160514
  5. EXELON PATCH [Suspect]
     Active Substance: RIVASTIGMINE
     Indication: PRODUCT USED FOR UNKNOWN INDICATION
     Dosage: UNK
     Route: 062

REACTIONS (10)
  - Diabetes mellitus [Fatal]
  - Pneumonia [Fatal]
  - Chronic obstructive pulmonary disease [Fatal]
  - Abasia [Recovering/Resolving]
  - Cardio-respiratory arrest [Fatal]
  - Acute respiratory failure [Fatal]
  - Malaise [Unknown]
  - Rash [Recovering/Resolving]
  - Atrial fibrillation [Fatal]
  - Dysphagia [Recovering/Resolving]

NARRATIVE: CASE EVENT DATE: 2011
